FAERS Safety Report 8877731 (Version 1)
Quarter: 2012Q4

REPORT INFORMATION
  Report Type: Spontaneous
  Country: AU (occurrence: None)
  Receive Date: 20121026
  Receipt Date: 20121026
  Transmission Date: 20130627
  Serious: Yes (Other)
  Sender: FDA-Public Use
  Company Number: AU-CLINIGEN HEALTHCARE LIMITED-003006

PATIENT
  Age: 65 Year
  Sex: Male

DRUGS (2)
  1. FOSCARNET SODIUM [Suspect]
     Indication: CYTOMEGALOVIRUS INFECTION
     Route: 042
  2. FOSCARNET SODIUM [Suspect]
     Indication: CMV RETINITIS

REACTIONS (6)
  - Retinal haemorrhage [None]
  - Visual acuity reduced [None]
  - Vision blurred [None]
  - Necrotising retinitis [None]
  - Off label use [None]
  - Cytomegalovirus chorioretinitis [None]
